FAERS Safety Report 16891512 (Version 1)
Quarter: 2019Q4

REPORT INFORMATION
  Report Type: Other
  Country: PL (occurrence: PL)
  Receive Date: 20191007
  Receipt Date: 20191007
  Transmission Date: 20200122
  Serious: Yes (Hospitalization, Other)
  Sender: FDA-Public Use
  Company Number: PL-US-PROVELL PHARMACEUTICALS LLC-E2B_90071136

PATIENT
  Age: 34 Year
  Sex: Female

DRUGS (18)
  1. ENOXAPARIN [Suspect]
     Active Substance: ENOXAPARIN
     Indication: CONTROLLED OVARIAN STIMULATION
  2. UROFOLLITROPIN [Suspect]
     Active Substance: UROFOLLITROPIN
     Indication: IN VITRO FERTILISATION
  3. PREDNISONE. [Interacting]
     Active Substance: PREDNISONE
     Indication: CONTROLLED OVARIAN STIMULATION
  4. L-THYROXIN [Interacting]
     Active Substance: LEVOTHYROXINE SODIUM
     Dosage: DOSE REDUCED
  5. ACETYLCYSTEINE. [Interacting]
     Active Substance: ACETYLCYSTEINE
     Indication: CONTROLLED OVARIAN STIMULATION
  6. L-THYROXIN [Interacting]
     Active Substance: LEVOTHYROXINE SODIUM
     Indication: HYPOTHYROIDISM
  7. ENOXAPARIN                         /01708202/ [Interacting]
     Active Substance: ENOXAPARIN SODIUM
     Indication: CONTROLLED OVARIAN STIMULATION
  8. TRIPTORELIN [Suspect]
     Active Substance: TRIPTORELIN
     Indication: IN VITRO FERTILISATION
  9. CABERGOLINE. [Suspect]
     Active Substance: CABERGOLINE
     Indication: OVARIAN HYPERSTIMULATION SYNDROME
  10. CHORIOGONADOTROPIN ALFA [Suspect]
     Active Substance: CHORIOGONADOTROPIN ALFA
     Indication: IN VITRO FERTILISATION
  11. FOLIC ACID. [Suspect]
     Active Substance: FOLIC ACID
     Indication: CONTROLLED OVARIAN STIMULATION
  12. IODINE. [Concomitant]
     Active Substance: IODINE
     Indication: PRODUCT USED FOR UNKNOWN INDICATION
  13. ALBUMIN [Concomitant]
     Active Substance: ALBUMIN HUMAN
     Indication: PRODUCT USED FOR UNKNOWN INDICATION
     Dosage: INFUSION
     Route: 065
  14. CHORIOGONADOTROPIN ALFA [Suspect]
     Active Substance: CHORIOGONADOTROPIN ALFA
     Dosage: DOSE REDUCED
  15. HYDROXYETHYLSTARCH [Concomitant]
     Active Substance: HETASTARCH
     Indication: PRODUCT USED FOR UNKNOWN INDICATION
  16. L-THYROXIN [Interacting]
     Active Substance: LEVOTHYROXINE SODIUM
  17. CABERGOLINE. [Concomitant]
     Active Substance: CABERGOLINE
     Indication: PRODUCT USED FOR UNKNOWN INDICATION
  18. PROGESTERON [Concomitant]
     Active Substance: PROGESTERONE
     Indication: PRODUCT USED FOR UNKNOWN INDICATION
     Route: 067

REACTIONS (5)
  - Drug interaction [Unknown]
  - Exposure during pregnancy [Recovered/Resolved]
  - Hyperthyroidism [Recovering/Resolving]
  - Ovarian hyperstimulation syndrome [Recovered/Resolved]
  - Thyroid disorder [Not Recovered/Not Resolved]
